FAERS Safety Report 11937336 (Version 2)
Quarter: 2016Q1

REPORT INFORMATION
  Report Type: Spontaneous
  Country: US (occurrence: US)
  Receive Date: 20160121
  Receipt Date: 20160129
  Transmission Date: 20160526
  Serious: Yes (Other)
  Sender: FDA-Public Use
  Company Number: US-ALLERGAN-1525666US

PATIENT
  Age: 63 Year
  Sex: Female

DRUGS (2)
  1. REFRESH P.M. [Suspect]
     Active Substance: MINERAL OIL\PETROLATUM
     Indication: EYE LUBRICATION THERAPY
     Dosage: QUARTER INCH, QHS
     Route: 047
     Dates: start: 20141211
  2. RESTASIS [Concomitant]
     Active Substance: CYCLOSPORINE
     Indication: DRY EYE
     Dosage: UNK
     Route: 047

REACTIONS (6)
  - Posterior capsule opacification [Unknown]
  - Foreign body in eye [Recovered/Resolved]
  - Eye pain [Unknown]
  - Vision blurred [Unknown]
  - Product contamination physical [Unknown]
  - Corneal degeneration [Recovered/Resolved]

NARRATIVE: CASE EVENT DATE: 20150129
